FAERS Safety Report 16280389 (Version 2)
Quarter: 2019Q2

REPORT INFORMATION
  Report Type: Spontaneous
  Country: IN (occurrence: IN)
  Receive Date: 20190507
  Receipt Date: 20190611
  Transmission Date: 20190711
  Serious: Yes (Death, Other)
  Sender: FDA-Public Use
  Company Number: IN-ABBVIE-19S-078-2771420-00

PATIENT
  Age: 6 Day
  Sex: Male
  Weight: 1.7 kg

DRUGS (1)
  1. SURVANTA [Suspect]
     Active Substance: BERACTANT
     Indication: NEONATAL RESPIRATORY DISTRESS SYNDROME
     Route: 007
     Dates: start: 20190407

REACTIONS (5)
  - Pulmonary haemorrhage [Fatal]
  - Lung infection [Fatal]
  - Drug ineffective [Fatal]
  - Bacterial sepsis [Unknown]
  - Acinetobacter bacteraemia [Unknown]

NARRATIVE: CASE EVENT DATE: 20190413
